FAERS Safety Report 8305284-5 (Version None)
Quarter: 2012Q1

REPORT INFORMATION
  Report Type: 
  Country: None (occurrence: None)
  Receive Date: 20120326
  Receipt Date: 20111202
  Transmission Date: 20120608
  Serious: Yes (Hospitalization)
  Sender: FDA-Public Use
  Company Number: PHEH2011US01012

PATIENT
  Sex: Male

DRUGS (1)
  1. TASIGNA [Suspect]
     Indication: CHRONIC MYELOID LEUKAEMIA
     Dosage: 300 MG, BID, ORAL, 150 MG, BID, ORAL
     Route: 048
     Dates: start: 20110429

REACTIONS (3)
  - INTERNATIONAL NORMALISED RATIO INCREASED [None]
  - DYSPNOEA [None]
  - JOINT SWELLING [None]
